FAERS Safety Report 5901983-0 (Version None)
Quarter: 2008Q3

REPORT INFORMATION
  Report Type: 
  Country: None (occurrence: None)
  Receive Date: 20080924
  Receipt Date: 20080908
  Transmission Date: 20090109
  Serious: Yes (Other)
  Sender: FDA-Public Use
  Company Number: 8037105

PATIENT
  Age: 73 Year
  Sex: Female

DRUGS (6)
  1. KEPPRA [Suspect]
     Indication: EPILEPSY
     Dosage: 500 MG 2/D PO
     Route: 048
     Dates: start: 20080101
  2. INDAPAMIDE [Concomitant]
  3. DRIPTANE [Concomitant]
  4. RANITIDINE [Concomitant]
  5. BENEMIDE [Concomitant]
  6. SIMVASTATIN [Concomitant]

REACTIONS (1)
  - PANCYTOPENIA [None]
